FAERS Safety Report 24389750 (Version 1)
Quarter: 2024Q4

REPORT INFORMATION
  Report Type: Spontaneous
  Country: PL (occurrence: PL)
  Receive Date: 20241003
  Receipt Date: 20241003
  Transmission Date: 20250115
  Serious: Yes (Other)
  Sender: AUROBINDO
  Company Number: PL-URPL-2-1306-2019

PATIENT
  Age: 32 Year
  Sex: Female

DRUGS (2)
  1. METRONIDAZOLE [Suspect]
     Active Substance: METRONIDAZOLE
     Indication: Clostridium difficile infection
     Dosage: 2 DOSAGE FORM, 3 TIMES A DAY (ON DAY 9, THE DOSE WAS INCREASED)
     Route: 048
  2. METRONIDAZOLE [Suspect]
     Active Substance: METRONIDAZOLE
     Dosage: 1 DOSAGE FORM, 3 TIMES A DAY (MEDICINE USED AT THIS DOSE FOR A WEEK)
     Route: 048

REACTIONS (7)
  - Oropharyngeal pain [Unknown]
  - Gastrooesophageal reflux disease [Unknown]
  - Dysgeusia [Unknown]
  - Pharyngeal oedema [Unknown]
  - Chromaturia [Unknown]
  - Musculoskeletal stiffness [Unknown]
  - Paraesthesia [Unknown]
